FAERS Safety Report 20447595 (Version 1)
Quarter: 2022Q1

REPORT INFORMATION
  Report Type: Report from Study
  Country: US (occurrence: US)
  Receive Date: 20220209
  Receipt Date: 20220209
  Transmission Date: 20220423
  Serious: Yes (Hospitalization)
  Sender: FDA-Public Use
  Company Number: US-HRARD-2021000003

PATIENT
  Sex: Male

DRUGS (11)
  1. LYSODREN [Suspect]
     Active Substance: MITOTANE
     Dosage: 4 DF DAILY, THEN DECREASED TO 3 DF, 2 DF DAILY, 1 DF DAILY, AND RE-INCREASED TO 2 DF DAILY
     Route: 048
     Dates: start: 20190315
  2. LYSODREN [Suspect]
     Active Substance: MITOTANE
     Route: 048
     Dates: start: 20201027
  3. ASPIRIN [Concomitant]
     Active Substance: ASPIRIN
  4. FUROSEMIDE [Concomitant]
     Active Substance: FUROSEMIDE
  5. GABAPENTIN [Concomitant]
     Active Substance: GABAPENTIN
  6. HYDROCORTISONE [Concomitant]
     Active Substance: HYDROCORTISONE
  7. LISINOPRIL [Concomitant]
     Active Substance: LISINOPRIL
  8. VITAMINS [Concomitant]
     Active Substance: VITAMINS
  9. POTASSIUM [Concomitant]
     Active Substance: POTASSIUM
  10. PRAVASTATIN [Concomitant]
     Active Substance: PRAVASTATIN
  11. TAMSULOSIN [Concomitant]
     Active Substance: TAMSULOSIN

REACTIONS (2)
  - Diarrhoea [Recovered/Resolved]
  - Diarrhoea [Not Recovered/Not Resolved]

NARRATIVE: CASE EVENT DATE: 20200101
